FAERS Safety Report 17535295 (Version 2)
Quarter: 2020Q2

REPORT INFORMATION
  Report Type: Report from Study
  Country: US (occurrence: US)
  Receive Date: 20200312
  Receipt Date: 20200427
  Transmission Date: 20200713
  Serious: Yes (Death, Hospitalization)
  Sender: FDA-Public Use
  Company Number: US-ACTELION-A-NJ2020-200470

PATIENT
  Age: 64 Year
  Sex: Female
  Weight: 86.62 kg

DRUGS (6)
  1. VELETRI [Suspect]
     Active Substance: EPOPROSTENOL
     Dosage: 30 NG/KG, PER MIN
     Route: 042
  2. VELETRI [Suspect]
     Active Substance: EPOPROSTENOL
     Dosage: 12 NG/KG, PER MIN
     Route: 042
  3. TADALAFIL. [Concomitant]
     Active Substance: TADALAFIL
  4. VELETRI [Suspect]
     Active Substance: EPOPROSTENOL
     Indication: PULMONARY ARTERIAL HYPERTENSION
     Dosage: 20 NG/KG, PER MIN
     Route: 042
     Dates: start: 202002
  5. VELETRI [Suspect]
     Active Substance: EPOPROSTENOL
     Dosage: 10 NG/KG, PER MIN
     Route: 042
  6. VELETRI [Suspect]
     Active Substance: EPOPROSTENOL
     Dosage: 22 NG/KG, PER MIN
     Route: 042
     Dates: start: 202002

REACTIONS (13)
  - Diarrhoea [Unknown]
  - Dyspnoea [Recovering/Resolving]
  - Rash [Unknown]
  - Death [Fatal]
  - Depressed mood [Unknown]
  - Decreased appetite [Unknown]
  - Abdominal pain [Unknown]
  - Hospitalisation [Unknown]
  - Sputum discoloured [Unknown]
  - Nausea [Unknown]
  - Pneumonia [Unknown]
  - Flushing [Unknown]
  - Productive cough [Unknown]

NARRATIVE: CASE EVENT DATE: 20200302
